FAERS Safety Report 8374162-8 (Version None)
Quarter: 2012Q2

REPORT INFORMATION
  Report Type: 
  Country: None (occurrence: None)
  Receive Date: 20120521
  Receipt Date: 20120514
  Transmission Date: 20120825
  Serious: Yes (Death, Hospitalization)
  Sender: FDA-Public Use
  Company Number: US-GLAXOSMITHKLINE-A0978255A

PATIENT
  Age: 88 Year
  Sex: Female

DRUGS (3)
  1. PAIN MEDICATIONS [Suspect]
  2. PREDNISONE [Suspect]
     Indication: PRODUCT USED FOR UNKNOWN INDICATION
     Route: 065
  3. MELPHALAN [Suspect]
     Indication: PRODUCT USED FOR UNKNOWN INDICATION
     Route: 065

REACTIONS (9)
  - DEATH [None]
  - ASTHENIA [None]
  - ASPIRATION [None]
  - DEHYDRATION [None]
  - DEPRESSED LEVEL OF CONSCIOUSNESS [None]
  - RENAL FAILURE [None]
  - NECK PAIN [None]
  - PAIN IN EXTREMITY [None]
  - BLOOD CREATININE INCREASED [None]
